FAERS Safety Report 7412091-4 (Version None)
Quarter: 2011Q2

REPORT INFORMATION
  Report Type: 
  Country: None (occurrence: None)
  Receive Date: 20110413
  Receipt Date: 20110408
  Transmission Date: 20111010
  Serious: Yes (Death, Life-Threatening, Hospitalization, Other)
  Sender: FDA-Public Use
  Company Number: KR-BAYER-2011-026078

PATIENT
  Age: 53 Year
  Sex: Male

DRUGS (8)
  1. UNKNOWN [Concomitant]
     Indication: DIABETES MELLITUS
     Dosage: 250 MG, QD
     Route: 048
     Dates: start: 20060101
  2. SORAFENIB (RAF KINASE INHIBITOR) [Suspect]
     Indication: HEPATIC NEOPLASM MALIGNANT
     Dosage: (200/400 MG)= 600 MG DAILY
     Route: 048
     Dates: start: 20110315, end: 20110324
  3. AMARYL [Concomitant]
     Indication: DIABETES MELLITUS
     Dosage: 1 MG, QD
     Route: 048
     Dates: start: 20110304
  4. ACTOS [Concomitant]
     Indication: DIABETES MELLITUS
     Dosage: 1.5 MG, QD
     Route: 048
     Dates: start: 20060101, end: 20110303
  5. SPIRONOLACTONE [Concomitant]
     Indication: ASCITES
     Dosage: 50 MG, QD
     Route: 048
     Dates: start: 20110304
  6. SEBIVO [Concomitant]
     Indication: HEPATITIS B
     Dosage: 600 MG, QD
     Route: 048
     Dates: start: 20101112
  7. MEK INHIBITOR (DIHYDROXYPROP-DIFLU-METHOXYPHEN-CYCLOPROPA-SULFAMI) [Suspect]
     Indication: HEPATIC NEOPLASM MALIGNANT
     Dosage: 50 MG, BID
     Route: 048
     Dates: start: 20110315, end: 20110324
  8. LASIX [Concomitant]
     Indication: ASCITES
     Dosage: 20 MG, QD
     Route: 048
     Dates: start: 20110304

REACTIONS (4)
  - HYPOGLYCAEMIA [None]
  - GASTRIC HAEMORRHAGE [None]
  - COAGULOPATHY [None]
  - ACUTE HEPATIC FAILURE [None]
